FAERS Safety Report 6558527-2 (Version None)
Quarter: 2010Q1

REPORT INFORMATION
  Report Type: 
  Country: None (occurrence: None)
  Receive Date: 20100129
  Receipt Date: 20100121
  Transmission Date: 20100710
  Serious: Yes (Hospitalization, Other)
  Sender: FDA-Public Use
  Company Number: US-JNJFOC-20100100016

PATIENT
  Sex: Male
  Weight: 117.94 kg

DRUGS (5)
  1. DURAGESIC-100 [Suspect]
     Indication: BACK PAIN
     Route: 062
  2. DURAGESIC-100 [Suspect]
     Dosage: NDC: 50458-036-05
     Route: 062
  3. DURAGESIC-100 [Suspect]
     Route: 062
  4. FENTANYL [Suspect]
     Indication: BACK PAIN
     Route: 062
  5. UNKNOWN MULTIPLE MEDICATION [Concomitant]
     Route: 065

REACTIONS (10)
  - ABNORMAL LOSS OF WEIGHT [None]
  - CARDIAC DISORDER [None]
  - CARDIAC FAILURE CONGESTIVE [None]
  - DRUG DOSE OMISSION [None]
  - DYSKINESIA [None]
  - HYPERHIDROSIS [None]
  - SLEEP APNOEA SYNDROME [None]
  - THERAPEUTIC RESPONSE DECREASED [None]
  - TREATMENT NONCOMPLIANCE [None]
  - WITHDRAWAL SYNDROME [None]
